FAERS Safety Report 7383627-7 (Version None)
Quarter: 2011Q1

REPORT INFORMATION
  Report Type: 
  Country: None (occurrence: None)
  Receive Date: 20110330
  Receipt Date: 20110322
  Transmission Date: 20110831
  Serious: Yes (Life-Threatening)
  Sender: FDA-Public Use
  Company Number: US-CELGENEUS-163-21880-11031240

PATIENT
  Sex: Male
  Weight: 79.45 kg

DRUGS (7)
  1. LOVENOX [Concomitant]
     Indication: ANTICOAGULANT THERAPY
     Route: 065
  2. REVLIMID [Suspect]
     Dosage: 5 MILLIGRAM
     Route: 048
     Dates: start: 20110301
  3. SIMVASTATIN [Concomitant]
     Route: 065
  4. SYNTHROID [Concomitant]
     Indication: HYPOTHYROIDISM
     Dosage: 75 MICROGRAM
     Route: 065
  5. RYTHMOL [Concomitant]
     Indication: ATRIAL FIBRILLATION
     Dosage: 3 DOSAGE FORMS
     Route: 065
  6. PRILOSEC [Concomitant]
     Route: 065
  7. ATENOLOL [Concomitant]
     Indication: ATRIAL FIBRILLATION
     Dosage: 25 MILLIGRAM
     Route: 065

REACTIONS (2)
  - FATIGUE [None]
  - ATRIAL FIBRILLATION [None]
